FAERS Safety Report 10355469 (Version 7)
Quarter: 2020Q3

REPORT INFORMATION
  Report Type: Report from Study
  Country: AU (occurrence: AU)
  Receive Date: 20140731
  Receipt Date: 20160630
  Transmission Date: 20201105
  Serious: Yes (Hospitalization)
  Sender: FDA-Public Use
  Company Number: AU-JNJFOC-20140716493

PATIENT
  Age: 69 Year
  Sex: Male
  Weight: 117 kg

DRUGS (22)
  1. RITUXIMAB. [Suspect]
     Active Substance: RITUXIMAB
     Indication: MANTLE CELL LYMPHOMA
     Route: 042
     Dates: start: 20140805
  2. RITUXIMAB. [Suspect]
     Active Substance: RITUXIMAB
     Indication: MANTLE CELL LYMPHOMA
     Route: 042
     Dates: start: 20140708
  3. TEMAZEPAM. [Concomitant]
     Active Substance: TEMAZEPAM
     Indication: INSOMNIA
     Dosage: HS (AT BED TIME)
     Route: 048
     Dates: start: 20140701
  4. OXAZEPAM. [Concomitant]
     Active Substance: OXAZEPAM
     Indication: INSOMNIA
     Dosage: HS (AT BED TIME)
     Route: 048
     Dates: start: 20140701
  5. IBRUTINIB [Suspect]
     Active Substance: IBRUTINIB
     Indication: MANTLE CELL LYMPHOMA
     Route: 048
     Dates: start: 20140805, end: 20140823
  6. BENDAMUSTINE HYDROCHLORIDE. [Suspect]
     Active Substance: BENDAMUSTINE HYDROCHLORIDE
     Indication: MANTLE CELL LYMPHOMA
     Route: 042
     Dates: start: 20140708
  7. BENDAMUSTINE HYDROCHLORIDE. [Suspect]
     Active Substance: BENDAMUSTINE HYDROCHLORIDE
     Indication: MANTLE CELL LYMPHOMA
     Route: 042
     Dates: start: 20140708
  8. DEXAMETHASONE. [Concomitant]
     Active Substance: DEXAMETHASONE
     Dosage: QAM (IN THE MORNING)
     Route: 048
  9. METOCLOPRAMIDE. [Concomitant]
     Active Substance: METOCLOPRAMIDE
     Indication: NAUSEA
     Route: 048
     Dates: start: 20140711
  10. METFORMIN HYDROCHLORIDE. [Concomitant]
     Active Substance: METFORMIN HYDROCHLORIDE
     Dosage: QPM EVERY EVENING
     Route: 048
  11. IBRUTINIB [Suspect]
     Active Substance: IBRUTINIB
     Indication: MANTLE CELL LYMPHOMA
     Route: 048
     Dates: start: 20140708, end: 20140722
  12. BENDAMUSTINE HYDROCHLORIDE. [Suspect]
     Active Substance: BENDAMUSTINE HYDROCHLORIDE
     Indication: MANTLE CELL LYMPHOMA
     Route: 042
     Dates: start: 20140805
  13. GLICLAZIDE [Concomitant]
     Active Substance: GLICLAZIDE
     Route: 048
  14. EZETROL [Concomitant]
     Active Substance: EZETIMIBE
     Dosage: QAM (IN THE MORNING)
     Route: 048
  15. ESOMEPRAZOLE. [Concomitant]
     Active Substance: ESOMEPRAZOLE MAGNESIUM
     Route: 048
  16. PARACETAMOL [Concomitant]
     Active Substance: ACETAMINOPHEN
     Route: 048
  17. ENOXAPARIN [Concomitant]
     Active Substance: ENOXAPARIN
     Dosage: STAT IMMEDIATELY
     Route: 058
  18. OXAZEPAM. [Concomitant]
     Active Substance: OXAZEPAM
     Indication: INSOMNIA
     Dosage: HS (AT BED TIME)
     Route: 048
     Dates: start: 20140701
  19. TELMISARTAN. [Concomitant]
     Active Substance: TELMISARTAN
     Dosage: QAM (IN THE MORNING)
     Route: 048
  20. INSULIN ASPART [Concomitant]
     Active Substance: INSULIN ASPART
     Dosage: 22 UNITS,QPM (EVERY EVENING)
     Route: 058
  21. INSULIN ASPART [Concomitant]
     Active Substance: INSULIN ASPART
     Dosage: 14 UNITS, QAM (IN THE MORNING)
     Route: 058
  22. LOPERAMIDE [Concomitant]
     Active Substance: LOPERAMIDE
     Indication: DIARRHOEA
     Route: 048
     Dates: start: 20140718

REACTIONS (3)
  - Pleural effusion [Recovered/Resolved]
  - Rash maculo-papular [Recovered/Resolved]
  - Oedema peripheral [Recovered/Resolved]

NARRATIVE: CASE EVENT DATE: 20140719
